FAERS Safety Report 4507293-0 (Version None)
Quarter: 2005Q1

REPORT INFORMATION
  Report Type: 
  Country: None (occurrence: None)
  Receive Date: 20041025
  Receipt Date: 20040604
  Transmission Date: 20050727
  Serious: Yes (Other)
  Sender: FDA-Public Use
  Company Number: US-JNJFOC-20040601533

PATIENT
  Sex: Female

DRUGS (1)
  1. REMICADE (INFLIXIMAB, RECOMBINANT) LYPHOLIZED POWDER [Suspect]
     Dosage: INTRAVENOUS
     Route: 042

REACTIONS (1)
  - SYSTEMIC LUPUS ERYTHEMATOSUS [None]
